FAERS Safety Report 9788280 (Version 1)
Quarter: 2013Q4

REPORT INFORMATION
  Report Type: Spontaneous
  Country: IT (occurrence: IT)
  Receive Date: 20131230
  Receipt Date: 20131230
  Transmission Date: 20140711
  Serious: Yes (Life-Threatening)
  Sender: FDA-Public Use
  Company Number: IT-AMGEN-ITASP2013090822

PATIENT
  Age: 51 Year
  Sex: Female

DRUGS (2)
  1. ENBREL [Suspect]
     Indication: PSORIATIC ARTHROPATHY
     Dosage: 50 MG, WEEKLY
     Route: 058
     Dates: start: 20131111, end: 20131219
  2. REUMAFLEX                          /00375701/ [Concomitant]
     Dosage: 15 MG, UNK
     Route: 058
     Dates: start: 20120701, end: 20131219

REACTIONS (5)
  - Erythema [Recovering/Resolving]
  - Throat tightness [Recovering/Resolving]
  - Pruritus generalised [Recovering/Resolving]
  - Injection site pruritus [Recovering/Resolving]
  - Injection site erythema [Recovering/Resolving]
